FAERS Safety Report 7519857-0 (Version None)
Quarter: 2011Q2

REPORT INFORMATION
  Report Type: 
  Country: None (occurrence: None)
  Receive Date: 20110602
  Receipt Date: 20110531
  Transmission Date: 20111010
  Serious: Yes (Death, Hospitalization)
  Sender: FDA-Public Use
  Company Number: US-B.I. PHARMACEUTICALS,INC./RIDGEFIELD-2011-BP-12311BP

PATIENT
  Age: 95 Year
  Sex: Male
  Weight: 80 kg

DRUGS (7)
  1. AMIODARONE HCL [Concomitant]
  2. LISINOPRIL [Concomitant]
     Dosage: 10 MG
  3. PRADAXA [Suspect]
     Indication: ATRIAL FIBRILLATION
     Dosage: 150 MG
     Route: 048
     Dates: end: 20110331
  4. LASIX [Concomitant]
     Dosage: 40 MG
  5. ASPIRIN [Suspect]
     Dosage: 81 MG
     Dates: end: 20110331
  6. PRADAXA [Suspect]
     Dosage: 150 MG
     Route: 048
     Dates: start: 20110404
  7. PLAVIX [Suspect]
     Dosage: 300 MG
     Dates: end: 20110331

REACTIONS (2)
  - SUBDURAL HAEMATOMA [None]
  - SUBDURAL HAEMORRHAGE [None]
